FAERS Safety Report 9523478 (Version 5)
Quarter: 2013Q4

REPORT INFORMATION
  Report Type: Spontaneous
  Country: NL (occurrence: NL)
  Receive Date: 20130913
  Receipt Date: 20131211
  Transmission Date: 20140711
  Serious: Yes (Hospitalization)
  Sender: FDA-Public Use
  Company Number: PHHY2013NL089015

PATIENT
  Age: 70 Year
  Sex: Female
  Weight: 87 kg

DRUGS (12)
  1. GEMFIBROZIL SANDOZ [Suspect]
     Dosage: 600 MG, UNK
     Route: 048
     Dates: start: 20130731, end: 20130807
  2. OMEPRAZOL CF [Concomitant]
  3. METFORMINE [Concomitant]
     Dosage: 500 MG, TID
  4. COZAAR [Concomitant]
     Dosage: 100 MG, QD
  5. SOTALOL HYDROCHLORIDE [Concomitant]
     Dosage: 40 MG, QD
  6. AMLODIPINE [Concomitant]
     Dosage: 5 MG, QD
  7. CALCICHEW [Concomitant]
     Dosage: 500 MG, QD
  8. OXAZEPAM [Concomitant]
     Dosage: 2 DF, IN THE EVENING
  9. ALENDRONIC ACID [Concomitant]
  10. SOTALOL [Concomitant]
  11. ACENOCOUMAROL [Concomitant]
  12. CALCI CHEW [Concomitant]

REACTIONS (14)
  - Hypercalcaemia [Unknown]
  - Fluid imbalance [Unknown]
  - Fibromyalgia [Unknown]
  - Pain [Not Recovered/Not Resolved]
  - Back pain [Unknown]
  - Arthralgia [Unknown]
  - Myalgia [Unknown]
  - Musculoskeletal pain [Unknown]
  - Musculoskeletal stiffness [Unknown]
  - Parathyroid gland enlargement [Unknown]
  - Gait disturbance [Unknown]
  - Insomnia [Unknown]
  - Decreased appetite [Unknown]
  - Nausea [Unknown]
